FAERS Safety Report 18548497 (Version 3)
Quarter: 2020Q4

REPORT INFORMATION
  Report Type: Spontaneous
  Country: DE (occurrence: DE)
  Receive Date: 20201125
  Receipt Date: 20201230
  Transmission Date: 20210114
  Serious: No
  Sender: FDA-Public Use
  Company Number: DE-JNJFOC-20201122082

PATIENT
  Age: 52 Year
  Sex: Female

DRUGS (10)
  1. DUROGESIC SMAT [Suspect]
     Active Substance: FENTANYL
     Indication: PRODUCT USED FOR UNKNOWN INDICATION
     Dosage: STRENGTH: 25 G/H
     Route: 062
  2. DUROGESIC SMAT [Suspect]
     Active Substance: FENTANYL
  3. DUROGESIC SMAT [Suspect]
     Active Substance: FENTANYL
  4. DUROGESIC SMAT [Suspect]
     Active Substance: FENTANYL
  5. DUROGESIC SMAT [Suspect]
     Active Substance: FENTANYL
  6. DUROGESIC SMAT [Suspect]
     Active Substance: FENTANYL
  7. DUROGESIC SMAT [Suspect]
     Active Substance: FENTANYL
     Indication: PRODUCT USED FOR UNKNOWN INDICATION
     Dosage: STRENGTH: 25 G/H
     Route: 062
  8. DUROGESIC SMAT [Suspect]
     Active Substance: FENTANYL
  9. DUROGESIC SMAT [Suspect]
     Active Substance: FENTANYL
  10. DUROGESIC SMAT [Suspect]
     Active Substance: FENTANYL
     Dosage: STRENGTH: 12.5 G/H
     Route: 062

REACTIONS (3)
  - Underdose [Unknown]
  - Wrong technique in product usage process [Unknown]
  - Product adhesion issue [Unknown]
